FAERS Safety Report 6538980-0 (Version None)
Quarter: 2010Q1

REPORT INFORMATION
  Report Type: 
  Country: None (occurrence: None)
  Receive Date: 20100115
  Receipt Date: 20100111
  Transmission Date: 20100710
  Serious: Yes (Hospitalization)
  Sender: FDA-Public Use
  Company Number: FR-BRISTOL-MYERS SQUIBB COMPANY-14929475

PATIENT
  Age: 38 Year
  Sex: Female

DRUGS (8)
  1. ORENCIA [Suspect]
     Indication: JUVENILE ARTHRITIS
     Dates: start: 20090226
  2. METHOTREXATE [Concomitant]
  3. CORTANCYL [Concomitant]
  4. DOLIPRANE [Concomitant]
  5. IMUREL [Concomitant]
  6. VENOGLOBULIN-S [Concomitant]
     Route: 042
  7. ANAKINRA [Concomitant]
  8. TOCILIZUMAB [Concomitant]

REACTIONS (1)
  - CYTOLYTIC HEPATITIS [None]
